FAERS Safety Report 13362386 (Version 1)
Quarter: 2017Q1

REPORT INFORMATION
  Report Type: Spontaneous
  Country: US (occurrence: US)
  Receive Date: 20170322
  Receipt Date: 20170322
  Transmission Date: 20170429
  Serious: Yes (Other)
  Sender: FDA-Public Use
  Company Number: None

PATIENT
  Age: 41 Year
  Sex: Male
  Weight: 92.25 kg

DRUGS (1)
  1. VIRTUSSIN AC [Suspect]
     Active Substance: CODEINE PHOSPHATE\GUAIFENESIN
     Indication: BRONCHITIS CHRONIC
     Dosage: QUANTITY:1 TEASPOON(S);?
     Route: 048
     Dates: start: 20170321

REACTIONS (11)
  - Mental status changes [None]
  - Vision blurred [None]
  - Nausea [None]
  - Chills [None]
  - Muscle spasms [None]
  - Dizziness [None]
  - Dyspnoea [None]
  - Fatigue [None]
  - Hyperhidrosis [None]
  - Hallucination [None]
  - Abdominal pain upper [None]

NARRATIVE: CASE EVENT DATE: 20170321
